FAERS Safety Report 13041123 (Version 1)
Quarter: 2016Q4

REPORT INFORMATION
  Report Type: Spontaneous
  Country: IN (occurrence: IN)
  Receive Date: 20161219
  Receipt Date: 20161219
  Transmission Date: 20170207
  Serious: Yes (Other)
  Sender: FDA-Public Use
  Company Number: IN-UNICHEM LABORATORIES LIMITED-UCM201612-000289

PATIENT
  Age: 25 Year
  Sex: Female

DRUGS (5)
  1. TOPIRAMATE. [Suspect]
     Active Substance: TOPIRAMATE
     Indication: INSOMNIA
  2. TOPIRAMATE. [Suspect]
     Active Substance: TOPIRAMATE
     Indication: HEADACHE
  3. BRIMONIDINE/ TIMOLOL [Concomitant]
     Indication: ANGLE CLOSURE GLAUCOMA
     Route: 047
  4. BRIMONIDINE/ TIMOLOL [Concomitant]
  5. ACETAZOLAMIDE. [Concomitant]
     Active Substance: ACETAZOLAMIDE
     Indication: ANGLE CLOSURE GLAUCOMA

REACTIONS (4)
  - Macular fibrosis [Recovered/Resolved]
  - Product use issue [Unknown]
  - Toxicity to various agents [Recovered/Resolved]
  - Acute myopia [Recovered/Resolved]
